FAERS Safety Report 10080306 (Version 1)
Quarter: 2014Q2

REPORT INFORMATION
  Report Type: Spontaneous
  Country: FR (occurrence: FR)
  Receive Date: 20140415
  Receipt Date: 20140415
  Transmission Date: 20141212
  Serious: Yes (Other)
  Sender: FDA-Public Use
  Company Number: FR-ABBVIE-14P-056-1226240-00

PATIENT
  Age: 55 Year
  Sex: 0

DRUGS (2)
  1. VALPROATE SODIUM [Suspect]
     Indication: MIGRAINE
     Route: 048
     Dates: start: 201311
  2. MECIR [Suspect]
     Indication: PROSTATIC ADENOMA
     Route: 048
     Dates: start: 201303

REACTIONS (1)
  - Retrograde ejaculation [Unknown]
